FAERS Safety Report 14635029 (Version 1)
Quarter: 2018Q1

REPORT INFORMATION
  Report Type: Spontaneous
  Country: DK (occurrence: FR)
  Receive Date: 20180314
  Receipt Date: 20180314
  Transmission Date: 20180509
  Serious: Yes (Death, Life-Threatening, Hospitalization, Other)
  Sender: FDA-Public Use
  Company Number: FR-ALLERGAN-S06-FRA-01387-01

PATIENT
  Age: 26 Year
  Sex: Female

DRUGS (12)
  1. MIFEGYNE [Suspect]
     Active Substance: MIFEPRISTONE
     Indication: PRODUCT USED FOR UNKNOWN INDICATION
     Dosage: 600 MG, QD
     Route: 048
     Dates: start: 20060207, end: 20060207
  2. ZOPICLONE [Concomitant]
     Active Substance: ZOPICLONE
     Route: 065
  3. MISOPROSTOL. [Suspect]
     Active Substance: MISOPROSTOL
     Indication: PRODUCT USED FOR UNKNOWN INDICATION
     Dosage: 800 ?G, UNK
     Route: 065
  4. ESCITALOPRAM OXALATE - BP [Suspect]
     Active Substance: ESCITALOPRAM OXALATE
     Indication: PRODUCT USED FOR UNKNOWN INDICATION
     Dosage: 15 MG, UNK
     Route: 048
     Dates: start: 20060303, end: 20060317
  5. TIAPRIDAL [Suspect]
     Active Substance: TIAPRIDE HYDROCHLORIDE
     Dosage: 100 MG, UNK
     Route: 048
     Dates: start: 20060303, end: 20060317
  6. ESCITALOPRAM OXALATE - BP [Suspect]
     Active Substance: ESCITALOPRAM OXALATE
     Dosage: 15 MG, QD
     Route: 048
     Dates: start: 20060303, end: 20060317
  7. ABILIFY [Suspect]
     Active Substance: ARIPIPRAZOLE
     Indication: PRODUCT USED FOR UNKNOWN INDICATION
     Dosage: 15 MG, QD
     Route: 048
     Dates: start: 20060309, end: 20060317
  8. CYTOTEC [Suspect]
     Active Substance: MISOPROSTOL
     Indication: PRODUCT USED FOR UNKNOWN INDICATION
     Dosage: 400 ?G, BID
     Route: 065
     Dates: start: 20060209
  9. TIAPRIDAL [Suspect]
     Active Substance: TIAPRIDE HYDROCHLORIDE
     Indication: PRODUCT USED FOR UNKNOWN INDICATION
     Dosage: 100 MG, QD
     Route: 048
     Dates: start: 20060303, end: 20060317
  10. MIFEGYNE [Suspect]
     Active Substance: MIFEPRISTONE
     Dosage: 200 MG, UNK
     Route: 048
  11. LYSANXIA [Concomitant]
     Active Substance: PRAZEPAM
     Dosage: 50 MG, QD
     Route: 065
     Dates: start: 20060309
  12. IMOVANE [Concomitant]
     Active Substance: ZOPICLONE
     Dosage: 7 MG, QD
     Route: 048
     Dates: start: 20060309

REACTIONS (11)
  - Delusion [Unknown]
  - Malaise [Recovered/Resolved]
  - Cardiac arrest [Fatal]
  - Chills [Recovered/Resolved]
  - Lactic acidosis [Unknown]
  - Back pain [Unknown]
  - Metrorrhagia [Unknown]
  - Retained placenta or membranes [Unknown]
  - Feeling hot [Unknown]
  - Respiratory arrest [Fatal]
  - Multiple organ dysfunction syndrome [Fatal]

NARRATIVE: CASE EVENT DATE: 20060213
